FAERS Safety Report 14881933 (Version 1)
Quarter: 2018Q2

REPORT INFORMATION
  Report Type: Spontaneous
  Country: US (occurrence: US)
  Receive Date: 20180511
  Receipt Date: 20180511
  Transmission Date: 20180711
  Serious: Yes (Other)
  Sender: FDA-Public Use
  Company Number: US-NAPPMUNDI-USA-2018-0143523

PATIENT
  Sex: Male

DRUGS (2)
  1. OXYCONTIN [Suspect]
     Active Substance: OXYCODONE HYDROCHLORIDE
     Indication: PAIN
     Dosage: 60 MG, Q12H
     Route: 048
     Dates: start: 1998
  2. OXYCODONE HYDROCHLORIDE (SIMILAR TO NDA 22-272) [Suspect]
     Active Substance: OXYCODONE HYDROCHLORIDE
     Indication: PAIN
     Dosage: 15 MG, Q8H PRN
     Route: 048
     Dates: start: 1998

REACTIONS (11)
  - Gingival disorder [Not Recovered/Not Resolved]
  - Feeding disorder [Not Recovered/Not Resolved]
  - Wound treatment [Not Recovered/Not Resolved]
  - Abdominal pain upper [Not Recovered/Not Resolved]
  - Radiation injury [Not Recovered/Not Resolved]
  - Hospice care [Not Recovered/Not Resolved]
  - Neoplasm malignant [Not Recovered/Not Resolved]
  - Radiation overdose [Not Recovered/Not Resolved]
  - Toothache [Not Recovered/Not Resolved]
  - Fear of death [Not Recovered/Not Resolved]
  - Dysphagia [Not Recovered/Not Resolved]

NARRATIVE: CASE EVENT DATE: 2013
